FAERS Safety Report 22218139 (Version 1)
Quarter: 2023Q2

REPORT INFORMATION
  Report Type: Spontaneous
  Country: CN (occurrence: CN)
  Receive Date: 20230417
  Receipt Date: 20230417
  Transmission Date: 20230722
  Serious: Yes (Other)
  Sender: FDA-Public Use
  Company Number: CN-PFIZER INC-PV202300064783

PATIENT
  Age: 21 Year
  Sex: Male

DRUGS (3)
  1. TYGACIL [Suspect]
     Active Substance: TIGECYCLINE
     Indication: Intracranial infection
     Dosage: 50 MG, 2X/DAY (DOUBLING AT THE FIRST DOSE)
     Route: 041
     Dates: start: 20170304
  2. CEFOPERAZONE SODIUM\SULBACTAM SODIUM [Concomitant]
     Active Substance: CEFOPERAZONE SODIUM\SULBACTAM SODIUM
     Indication: Intracranial infection
     Dosage: 3 G, 4X/DAY
     Route: 041
     Dates: start: 20170304
  3. SULFAMETHOXAZOLE [Concomitant]
     Active Substance: SULFAMETHOXAZOLE
     Indication: Intracranial infection
     Dosage: 2 DF, 2X/DAY
     Route: 048

REACTIONS (3)
  - Agitation [Recovering/Resolving]
  - Insomnia [Recovering/Resolving]
  - Off label use [Unknown]

NARRATIVE: CASE EVENT DATE: 20170308
